FAERS Safety Report 17068020 (Version 5)
Quarter: 2020Q1

REPORT INFORMATION
  Report Type: Report from Study
  Country: KR (occurrence: KR)
  Receive Date: 20191122
  Receipt Date: 20200113
  Transmission Date: 20200409
  Serious: Yes (Death, Hospitalization)
  Sender: FDA-Public Use
  Company Number: KR-B.I. PHARMACEUTICALS,INC./RIDGEFIELD-2019-BI-114514

PATIENT
  Age: 81 Year
  Sex: Male
  Weight: 93.9 kg

DRUGS (2)
  1. BIBF 1120 [Suspect]
     Active Substance: NINTEDANIB
     Indication: IDIOPATHIC PULMONARY FIBROSIS
     Route: 048
     Dates: start: 20170316, end: 20180517
  2. BIBF 1120 [Suspect]
     Active Substance: NINTEDANIB
     Route: 048
     Dates: start: 20180531, end: 20191111

REACTIONS (3)
  - Cerebral haemorrhage [Fatal]
  - Ischaemic stroke [Recovered/Resolved with Sequelae]
  - Pneumonia [Fatal]

NARRATIVE: CASE EVENT DATE: 2019
